FAERS Safety Report 7540346-1 (Version None)
Quarter: 2011Q2

REPORT INFORMATION
  Report Type: 
  Country: None (occurrence: None)
  Receive Date: 20110610
  Receipt Date: 20080620
  Transmission Date: 20111010
  Serious: Yes (Death)
  Sender: FDA-Public Use
  Company Number: PHHY2008CA02904

PATIENT
  Sex: Female

DRUGS (6)
  1. CLOZARIL [Suspect]
     Indication: SCHIZOPHRENIA
     Dosage: 1050 MG, QD
     Route: 048
     Dates: start: 19960222
  2. CLOZARIL [Suspect]
     Dosage: 150 MG/DAY, QHS
  3. SYNTHROID [Concomitant]
  4. GLUCOPHAGE [Concomitant]
  5. DIABETA [Concomitant]
  6. ATENOLOL [Concomitant]

REACTIONS (1)
  - DEATH [None]
